FAERS Safety Report 16740252 (Version 1)
Quarter: 2019Q3

REPORT INFORMATION
  Report Type: Spontaneous
  Country: ES (occurrence: ES)
  Receive Date: 20190826
  Receipt Date: 20190826
  Transmission Date: 20191005
  Serious: Yes (Other)
  Sender: FDA-Public Use
  Company Number: ES-009507513-1908ESP007024

PATIENT
  Age: 63 Year
  Sex: Male
  Weight: 77 kg

DRUGS (3)
  1. RISTFOR [Suspect]
     Active Substance: METFORMIN HYDROCHLORIDE\SITAGLIPTIN PHOSPHATE
     Indication: TYPE 2 DIABETES MELLITUS
     Dosage: 1 TABLET/12 HOURS AFTER MEAL; 56 TABLETS
     Route: 048
     Dates: start: 20150514
  2. SIMVASTATINA ALTER 20?MG COMPRESSE RIVESTITE CON FILM [Suspect]
     Active Substance: SIMVASTATIN
     Indication: TYPE 2 DIABETES MELLITUS
     Dosage: 1/2 HOUR BEFORE MEALS WITH A LOT OF CARBOHYDRATES; 28 TABLETS
     Route: 048
     Dates: start: 20170622
  3. PLEGRIDY [Suspect]
     Active Substance: PEGINTERFERON BETA-1A
     Indication: RELAPSING-REMITTING MULTIPLE SCLEROSIS
     Dosage: SOLUTION FOR INJECTION IN PREFILLED PENS OF 125 MCG/0.5 ML; 1 INJECTABLE OF 125 EVERY 14 DAYS SUBCUT
     Route: 058
     Dates: start: 20160518

REACTIONS (7)
  - Injection site erythema [Recovering/Resolving]
  - Myalgia [Recovering/Resolving]
  - Asthenia [Recovering/Resolving]
  - Pruritus generalised [Recovering/Resolving]
  - Respiratory distress [Recovering/Resolving]
  - Influenza like illness [Recovering/Resolving]
  - Pyrexia [Recovering/Resolving]

NARRATIVE: CASE EVENT DATE: 20160517
